FAERS Safety Report 25040557 (Version 1)
Quarter: 2025Q1

REPORT INFORMATION
  Report Type: Spontaneous
  Country: US (occurrence: None)
  Receive Date: 20250304
  Receipt Date: 20250304
  Transmission Date: 20250409
  Serious: Yes (Hospitalization)
  Sender: FDA-CTU
  Company Number: None

PATIENT
  Age: 61 Year
  Sex: Female

DRUGS (5)
  1. AMBRISENTAN [Suspect]
     Active Substance: AMBRISENTAN
     Indication: Pulmonary arterial hypertension
     Dosage: FREQUENCY : DAILY;?
     Route: 048
     Dates: start: 202409
  2. SODIUM CHLOR INJ (1000ML/BAG) [Concomitant]
  3. SOD CHLOR SDI/ (SOML/FTV) [Concomitant]
  4. DEVICE [Concomitant]
     Active Substance: DEVICE
  5. VELETRI [Concomitant]
     Active Substance: EPOPROSTENOL

REACTIONS (1)
  - Obstructive airways disorder [None]

NARRATIVE: CASE EVENT DATE: 20250223
